FAERS Safety Report 6531857-6 (Version None)
Quarter: 2010Q1

REPORT INFORMATION
  Report Type: 
  Country: None (occurrence: None)
  Receive Date: 20100108
  Receipt Date: 20091230
  Transmission Date: 20100710
  Serious: No
  Sender: FDA-Public Use
  Company Number: KR-JNJFOC-20100100031

PATIENT
  Sex: Male

DRUGS (1)
  1. DURAGESIC-100 [Suspect]
     Indication: PAIN
     Route: 062
     Dates: start: 20091228, end: 20091230

REACTIONS (2)
  - HEADACHE [None]
  - TREATMENT NONCOMPLIANCE [None]
